FAERS Safety Report 5178987-1 (Version None)
Quarter: 2006Q4

REPORT INFORMATION
  Report Type: 
  Country: None (occurrence: None)
  Receive Date: 20061214
  Receipt Date: 20061214
  Transmission Date: 20070319
  Serious: Yes (Death)
  Sender: FDA-Public Use
  Company Number: None

PATIENT
  Age: 44 Year
  Sex: Male
  Weight: 95.2554 kg

DRUGS (2)
  1. METHADONE HCL [Suspect]
     Indication: BACK PAIN
     Dosage: 15MG 3 X
     Dates: start: 20050701, end: 20051101
  2. VALIUM [Suspect]
     Dosage: 5MG  3X
     Dates: start: 20051101

REACTIONS (1)
  - NO ADVERSE EFFECT [None]
